FAERS Safety Report 13285566 (Version 3)
Quarter: 2017Q2

REPORT INFORMATION
  Report Type: Spontaneous
  Country: US (occurrence: US)
  Receive Date: 20170302
  Receipt Date: 20170424
  Transmission Date: 20170830
  Serious: Yes (Other)
  Sender: FDA-Public Use
  Company Number: US-ELI_LILLY_AND_COMPANY-US201702010844

PATIENT
  Age: 85 Year
  Sex: Male
  Weight: 73.47 kg

DRUGS (7)
  1. METOPROLOL. [Concomitant]
     Active Substance: METOPROLOL
  2. TAMSULOSIN [Concomitant]
     Active Substance: TAMSULOSIN
  3. ASA [Concomitant]
     Active Substance: ASPIRIN
  4. TRULICITY [Suspect]
     Active Substance: DULAGLUTIDE
     Indication: TYPE 2 DIABETES MELLITUS
     Dosage: 1.5 MG, WEEKLY (1/W)
     Route: 058
     Dates: start: 201611
  5. LISINOPRIL. [Concomitant]
     Active Substance: LISINOPRIL
  6. OMEPRAZOLE. [Concomitant]
     Active Substance: OMEPRAZOLE
  7. LIPITOR [Concomitant]
     Active Substance: ATORVASTATIN CALCIUM

REACTIONS (7)
  - Pancreatitis [Unknown]
  - Lipase increased [Recovered/Resolved]
  - Amylase increased [Not Recovered/Not Resolved]
  - Weight decreased [Unknown]
  - Lipase increased [Recovering/Resolving]
  - Diarrhoea [Recovering/Resolving]
  - Amylase increased [Recovered/Resolved]

NARRATIVE: CASE EVENT DATE: 20161124
